FAERS Safety Report 9326033 (Version 1)
Quarter: 2013Q2

REPORT INFORMATION
  Report Type: Report from Study
  Country: BR (occurrence: BR)
  Receive Date: 20130604
  Receipt Date: 20130604
  Transmission Date: 20140414
  Serious: Yes (Other)
  Sender: FDA-Public Use
  Company Number: BR-ROCHE-593706

PATIENT
  Age: 52 Year
  Sex: Female
  Weight: 61 kg

DRUGS (12)
  1. RITUXIMAB [Suspect]
     Indication: RHEUMATOID ARTHRITIS
     Dosage: FORM: INFUSION, 1ST INFUS.ON 04 JUN 08 AND 2ND INFUS.ON 19 JUN 08
     Route: 042
     Dates: start: 20080604, end: 20080619
  2. TOCILIZUMAB [Suspect]
     Indication: PRODUCT USED FOR UNKNOWN INDICATION
     Route: 042
     Dates: start: 20120918
  3. TOCILIZUMAB [Suspect]
     Route: 065
     Dates: start: 20121016
  4. METHOTREXATE [Concomitant]
  5. AMITRIPTYLINE [Concomitant]
  6. CORTISONE [Concomitant]
  7. ALENDRONIC ACID [Concomitant]
     Dosage: DRUG: ALENDRONATE
     Route: 065
  8. NIMESULIDE [Concomitant]
  9. DICLOFENAC [Concomitant]
  10. MELOXICAM [Concomitant]
  11. FERROUS SULFATE/FOLIC ACID [Concomitant]
  12. CALCIUM CARBONATE [Concomitant]

REACTIONS (20)
  - Pharyngeal oedema [Recovered/Resolved]
  - Nasal oedema [Recovered/Resolved]
  - Suffocation feeling [Recovered/Resolved]
  - Hypertension [Recovered/Resolved]
  - Hypoaesthesia oral [Recovered/Resolved]
  - Erythema [Recovered/Resolved]
  - Face oedema [Recovered/Resolved]
  - Rash erythematous [Not Recovered/Not Resolved]
  - Chills [Not Recovered/Not Resolved]
  - Skin disorder [Recovered/Resolved]
  - Sluggishness [Unknown]
  - Feeling of despair [Unknown]
  - Lower limb fracture [Unknown]
  - Red blood cell sedimentation rate decreased [Unknown]
  - C-reactive protein decreased [Unknown]
  - Pain in extremity [Unknown]
  - Local swelling [Unknown]
  - Insomnia [Unknown]
  - Pain in extremity [Unknown]
  - Rib fracture [Unknown]
